FAERS Safety Report 7890168 (Version 3)
Quarter: 2012Q4

REPORT INFORMATION
  Report Type: Report from Study
  Country: NL (occurrence: NL)
  Receive Date: 20110407
  Receipt Date: 20120927
  Transmission Date: 20130627
  Serious: Yes (Hospitalization, Other)
  Sender: FDA-Public Use
  Company Number: PHHO2011NL05478

PATIENT
  Age: 61 Year
  Sex: Male

DRUGS (11)
  1. AEB071 [Suspect]
     Indication: RENAL TRANSPLANT
     Dosage: 200 mg, BID
     Route: 048
     Dates: start: 20080905, end: 20110327
  2. RAD [Suspect]
     Indication: RENAL TRANSPLANT
     Dosage: 0.5 mg, BID
     Route: 048
     Dates: start: 20080905
  3. PREDNISOLONE [Concomitant]
  4. ACETYLSALICYLIC ACID [Concomitant]
  5. ALFACALCIDOL [Concomitant]
     Dosage: UNK
     Dates: start: 20110301
  6. FUROSEMIDE [Concomitant]
     Dosage: UNK
     Dates: start: 20110211
  7. PRAVASTATIN [Concomitant]
     Dosage: UNK
     Dates: start: 20101207, end: 20110301
  8. METOPROLOL [Concomitant]
  9. PANTOPRAZOLE [Concomitant]
  10. AMLODIPINE [Concomitant]
  11. TAMSULOSIN [Concomitant]

REACTIONS (1)
  - Leukocytoclastic vasculitis [Recovering/Resolving]
